FAERS Safety Report 8059360-5 (Version None)
Quarter: 2012Q1

REPORT INFORMATION
  Report Type: 
  Country: None (occurrence: None)
  Receive Date: 20120120
  Receipt Date: 20120120
  Transmission Date: 20120608
  Serious: Yes (Other)
  Sender: FDA-Public Use
  Company Number: None

PATIENT
  Age: 57 Year
  Sex: Female
  Weight: 71.214 kg

DRUGS (1)
  1. LISINOPRIL AND HYDROCHLOROTHIAZIDE [Suspect]
     Indication: HYPERTENSION
     Dosage: 10-12 MG
     Route: 048
     Dates: start: 20110520, end: 20120113

REACTIONS (5)
  - LIP SWELLING [None]
  - SWELLING [None]
  - HYPERSENSITIVITY [None]
  - PARAESTHESIA [None]
  - HYPOAESTHESIA [None]
